FAERS Safety Report 25138089 (Version 1)
Quarter: 2025Q1

REPORT INFORMATION
  Report Type: Spontaneous
  Country: US (occurrence: US)
  Receive Date: 20250329
  Receipt Date: 20250329
  Transmission Date: 20250409
  Serious: No
  Sender: SANOFI AVENTIS
  Company Number: US-SA-2025SA089030

PATIENT
  Age: 11 Year
  Sex: Female

DRUGS (1)
  1. DUPIXENT [Suspect]
     Active Substance: DUPILUMAB
     Indication: Dermatitis atopic
     Dosage: 200 MG, QOW
     Route: 058

REACTIONS (7)
  - Dry skin [Unknown]
  - Injection site paraesthesia [Unknown]
  - Injection site hypoaesthesia [Unknown]
  - Pruritus [Unknown]
  - Dermatitis atopic [Unknown]
  - Skin weeping [Unknown]
  - Therapeutic response shortened [Unknown]
